FAERS Safety Report 24068066 (Version 3)
Quarter: 2024Q3

REPORT INFORMATION
  Report Type: Report from Study
  Country: CO (occurrence: CO)
  Receive Date: 20240710
  Receipt Date: 20240910
  Transmission Date: 20241017
  Serious: Yes (Hospitalization)
  Sender: JOHNSON AND JOHNSON
  Company Number: CO-JNJFOC-20240713354

PATIENT
  Age: 79 Year
  Sex: Female
  Weight: 87 kg

DRUGS (1)
  1. SIMPONI [Suspect]
     Active Substance: GOLIMUMAB
     Indication: Ankylosing spondylitis
     Dosage: . LAST ADMINISTRATION DATE 25-JUN-2024
     Route: 058
     Dates: start: 20180621

REACTIONS (5)
  - Hypertension [Unknown]
  - Eye infection [Recovering/Resolving]
  - Conjunctivitis [Recovering/Resolving]
  - Ocular hypertension [Unknown]
  - Blindness unilateral [Recovering/Resolving]

NARRATIVE: CASE EVENT DATE: 20240601
